FAERS Safety Report 17080985 (Version 2)
Quarter: 2019Q4

REPORT INFORMATION
  Report Type: Spontaneous
  Country: US (occurrence: US)
  Receive Date: 20191127
  Receipt Date: 20191206
  Transmission Date: 20200122
  Serious: Yes (Hospitalization, Other)
  Sender: FDA-Public Use
  Company Number: US-MYLANLABS-2019M1111393

PATIENT
  Age: 50 Year
  Sex: Female
  Weight: 109 kg

DRUGS (2)
  1. ALPRAZOLAM TABLETS, USP [Suspect]
     Active Substance: ALPRAZOLAM
     Indication: PRODUCT USED FOR UNKNOWN INDICATION
     Dosage: 0.5 MILLIGRAM, QD
     Route: 065
     Dates: start: 201907
  2. ALPROZOLAM [Concomitant]
     Active Substance: ALPRAZOLAM
     Dosage: 1 MILLIGRAM, BID (AS PER NEEDED)

REACTIONS (7)
  - Multiple sclerosis [Not Recovered/Not Resolved]
  - Facial bones fracture [Recovering/Resolving]
  - Fall [Recovering/Resolving]
  - Oral candidiasis [Unknown]
  - Oral disorder [Recovered/Resolved]
  - Recalled product administered [Unknown]
  - Drug ineffective [Recovered/Resolved]

NARRATIVE: CASE EVENT DATE: 2019
